FAERS Safety Report 5607752-3 (Version None)
Quarter: 2008Q1

REPORT INFORMATION
  Report Type: 
  Country: None (occurrence: None)
  Receive Date: 20080130
  Receipt Date: 20080125
  Transmission Date: 20080703
  Serious: Yes (Hospitalization)
  Sender: FDA-Public Use
  Company Number: GB-JNJFOC-20080106701

PATIENT
  Sex: Female

DRUGS (1)
  1. HALDOL [Suspect]
     Indication: MENTAL DISORDER
     Route: 030

REACTIONS (1)
  - INTENTIONAL DRUG MISUSE [None]
